FAERS Safety Report 10967649 (Version 1)
Quarter: 2015Q1

REPORT INFORMATION
  Report Type: Spontaneous
  Country: US (occurrence: US)
  Receive Date: 20150330
  Receipt Date: 20150330
  Transmission Date: 20150721
  Serious: No
  Sender: FDA-Public Use
  Company Number: US-ASTRAZENECA-2014SE17240

PATIENT
  Age: 49 Year
  Sex: Female
  Weight: 42.2 kg

DRUGS (2)
  1. NEXIUM [Suspect]
     Active Substance: ESOMEPRAZOLE MAGNESIUM
     Indication: DYSPEPSIA
     Route: 048
     Dates: start: 20140307
  2. PRILOSEC [Suspect]
     Active Substance: OMEPRAZOLE MAGNESIUM
     Indication: DYSPEPSIA
     Route: 048
     Dates: start: 2012, end: 201401

REACTIONS (17)
  - Feeling abnormal [Unknown]
  - Gait disturbance [Unknown]
  - Regurgitation [Unknown]
  - Abdominal pain upper [Unknown]
  - Gastric ulcer [Unknown]
  - Feeding disorder [Unknown]
  - Crying [Unknown]
  - Gastrooesophageal reflux disease [Unknown]
  - Ulcer [Unknown]
  - Abdominal discomfort [Unknown]
  - Drug ineffective [Unknown]
  - Weight decreased [Unknown]
  - Product use issue [Unknown]
  - Hyperchlorhydria [Unknown]
  - Activities of daily living impaired [Unknown]
  - Vomiting [Not Recovered/Not Resolved]
  - Diarrhoea [Not Recovered/Not Resolved]
